FAERS Safety Report 9564788 (Version 1)
Quarter: 2013Q3

REPORT INFORMATION
  Report Type: Report from Study
  Country: IN (occurrence: IN)
  Receive Date: 20130930
  Receipt Date: 20130930
  Transmission Date: 20140515
  Serious: Yes (Death, Hospitalization)
  Sender: FDA-Public Use
  Company Number: PHHY2013IN108504

PATIENT
  Age: 44 Year
  Sex: Male

DRUGS (1)
  1. AFINITOR [Suspect]
     Indication: METASTATIC RENAL CELL CARCINOMA
     Dosage: 5 MG, QD
     Route: 048
     Dates: start: 20130530, end: 20130628

REACTIONS (4)
  - Metastatic renal cell carcinoma [Fatal]
  - General physical health deterioration [Unknown]
  - Chills [Unknown]
  - Pyrexia [Unknown]
